FAERS Safety Report 23040699 (Version 3)
Quarter: 2023Q4

REPORT INFORMATION
  Report Type: Report from Study
  Country: CA (occurrence: CA)
  Receive Date: 20231006
  Receipt Date: 20231107
  Transmission Date: 20240110
  Serious: Yes (Other)
  Sender: FDA-Public Use
  Company Number: CA-SANDOZ-SDZ2023CA019219

PATIENT
  Sex: Female

DRUGS (2)
  1. HYRIMOZ [Suspect]
     Active Substance: ADALIMUMAB-ADAZ
     Indication: Colitis ulcerative
     Dosage: 40 MG ,PRE FILLED PEN
     Route: 058
     Dates: start: 20230606
  2. CORTISONE [Concomitant]
     Active Substance: CORTISONE
     Indication: Product used for unknown indication
     Dosage: 1.5 MONTHS
     Route: 065

REACTIONS (10)
  - Rectal haemorrhage [Unknown]
  - Haematochezia [Unknown]
  - Ill-defined disorder [Unknown]
  - Malaise [Unknown]
  - Haemorrhoids [Unknown]
  - Rash [Unknown]
  - Alopecia [Unknown]
  - Product dose omission issue [Unknown]
  - Product availability issue [Unknown]
  - Drug ineffective [Unknown]
